FAERS Safety Report 7504546-9 (Version None)
Quarter: 2011Q2

REPORT INFORMATION
  Report Type: 
  Country: None (occurrence: None)
  Receive Date: 20110525
  Receipt Date: 20110516
  Transmission Date: 20111010
  Serious: Yes (Hospitalization)
  Sender: FDA-Public Use
  Company Number: DE-B.I. PHARMACEUTICALS,INC./RIDGEFIELD-2011-DE-03087DE

PATIENT
  Sex: Male

DRUGS (48)
  1. KETANEST S [Suspect]
     Dosage: 50 MG
     Route: 042
     Dates: start: 20050702, end: 20050702
  2. KETANEST S [Suspect]
     Dosage: 200 MG
     Route: 042
     Dates: start: 20050705, end: 20050705
  3. PROPOFOL [Suspect]
     Dosage: 320 MG
     Route: 042
     Dates: start: 20050622, end: 20050622
  4. CLORAZEPATE DIPOTASSIUM [Suspect]
     Dosage: 150 MG
     Route: 042
     Dates: start: 20050624, end: 20050624
  5. HALDOL [Suspect]
     Dosage: 17.5 MG
     Route: 042
     Dates: start: 20050702, end: 20050702
  6. HALDOL [Suspect]
     Dosage: 7.5 MG
     Route: 042
     Dates: start: 20050703, end: 20050704
  7. PROMETHAZINE HCL [Suspect]
     Dosage: 50 MG
     Route: 048
     Dates: start: 20050710, end: 20050710
  8. CIPRO [Suspect]
     Dosage: 400 MG
     Route: 042
     Dates: start: 20050709, end: 20050711
  9. HALDOL [Suspect]
     Dosage: 12.5 MG
     Route: 042
     Dates: start: 20050701, end: 20050701
  10. ACETAMINOPHEN [Suspect]
     Dosage: 1000 MG
     Route: 042
     Dates: start: 20050709, end: 20050709
  11. NITRAZEPAM [Suspect]
     Route: 042
     Dates: start: 20050623, end: 20050624
  12. TORSEMIDE [Suspect]
     Dosage: 10 MG
     Route: 042
     Dates: start: 20050704, end: 20050711
  13. SCOPOLAMINE [Suspect]
     Dosage: 20 MG
     Route: 042
     Dates: start: 20050709, end: 20050709
  14. KETANEST S [Suspect]
     Dosage: 100 MG
     Route: 042
     Dates: start: 20050708, end: 20050708
  15. CLORAZEPATE DIPOTASSIUM [Suspect]
     Dosage: 50 MG
     Route: 042
     Dates: start: 20050629, end: 20050701
  16. PROMETHAZINE HCL [Suspect]
     Dosage: 50 MG
     Route: 048
     Dates: start: 20050708, end: 20050708
  17. PROMETHAZINE HCL [Suspect]
     Dosage: 50 MG
     Route: 042
     Dates: start: 20050709, end: 20050709
  18. MADOPAR [Suspect]
     Indication: RESTLESS LEGS SYNDROME
     Dosage: 125 MG
     Route: 048
     Dates: start: 20050707, end: 20050710
  19. MORPHINE [Concomitant]
     Indication: RESTLESS LEGS SYNDROME
     Dosage: 20 MG
  20. PROPOFOL [Suspect]
     Dosage: 250 MG
     Route: 042
     Dates: start: 20050623, end: 20050623
  21. PROPOFOL [Suspect]
     Dosage: 20 MG
     Route: 042
     Dates: start: 20050625, end: 20050625
  22. LUDIOMIL [Suspect]
     Dosage: 75 MG
     Dates: start: 20050630, end: 20050630
  23. TORSEMIDE [Suspect]
     Dosage: 20 MG
     Route: 042
     Dates: start: 20050622
  24. TORSEMIDE [Suspect]
     Dosage: 70 MG
     Route: 042
     Dates: start: 20050623, end: 20050623
  25. LORAZEPAM [Suspect]
     Dosage: 2.5 MG
     Route: 042
     Dates: start: 20050705, end: 20050705
  26. PROPOFOL [Suspect]
     Route: 042
     Dates: start: 20050624, end: 20050624
  27. CLORAZEPATE DIPOTASSIUM [Suspect]
     Dosage: 50 MG
     Route: 042
     Dates: start: 20050627, end: 20050627
  28. TORSEMIDE [Suspect]
     Dosage: 30 MG
     Route: 042
     Dates: start: 20050624, end: 20050703
  29. NEXIUM [Suspect]
     Dosage: 40 MG
     Route: 048
     Dates: start: 20050704, end: 20050711
  30. NOVALGIN [Suspect]
     Dosage: 1000 MG
     Route: 042
     Dates: start: 20050709, end: 20050709
  31. NITRAZEPAM [Suspect]
     Dosage: 2 MG
     Route: 042
     Dates: start: 20050702, end: 20050702
  32. CLORAZEPATE DIPOTASSIUM [Suspect]
     Dosage: 425 MG
     Route: 042
     Dates: start: 20050625, end: 20050625
  33. HALDOL [Suspect]
     Dosage: 17.5 MG
     Route: 042
     Dates: start: 20050626, end: 20050626
  34. HALDOL [Suspect]
     Dosage: 7.5 MG
     Route: 042
     Dates: start: 20050627, end: 20050630
  35. LUDIOMIL [Suspect]
     Dates: start: 20050701, end: 20050704
  36. NEXIUM [Suspect]
     Dosage: 40 MG
     Route: 042
     Dates: start: 20050622, end: 20050703
  37. CLONIDINE HCL [Suspect]
     Route: 042
     Dates: start: 20050624, end: 20050709
  38. LORAZEPAM [Suspect]
     Dosage: 2 MG
     Route: 042
     Dates: start: 20050630, end: 20050701
  39. LORAZEPAM [Suspect]
     Dosage: 1 MG
     Route: 042
     Dates: start: 20050709, end: 20050709
  40. CLORAZEPATE DIPOTASSIUM [Suspect]
     Dosage: 200 MG
     Route: 042
     Dates: start: 20050705, end: 20050705
  41. CLORAZEPATE DIPOTASSIUM [Suspect]
     Dosage: 50 MG
     Route: 042
     Dates: start: 20050708, end: 20050708
  42. HALDOL [Suspect]
     Dosage: 5 MG
     Route: 042
     Dates: start: 20050625, end: 20050625
  43. LUDIOMIL [Suspect]
     Dates: start: 20050628, end: 20050629
  44. LUDIOMIL [Suspect]
     Dosage: 75 MG
     Route: 048
     Dates: start: 20050705, end: 20050710
  45. LUDIOMIL [Suspect]
     Dosage: 25 MG
     Route: 048
     Dates: start: 20050711, end: 20050711
  46. METHYLPREDNISOLONE [Suspect]
     Dosage: 16 MG
     Route: 042
     Dates: start: 20050624, end: 20050624
  47. ASPIRIN [Suspect]
     Dosage: 100 MG
     Route: 048
     Dates: start: 20050706, end: 20050706
  48. METOCLOPRAMIDE [Suspect]
     Dosage: 16.9 MG
     Route: 042
     Dates: start: 20050709, end: 20050709

REACTIONS (7)
  - TRACHEOBRONCHITIS [None]
  - RESTLESSNESS [None]
  - ACUTE ABDOMEN [None]
  - FALL [None]
  - SCREAMING [None]
  - DRUG INTERACTION [None]
  - DISORIENTATION [None]
